FAERS Safety Report 13752875 (Version 2)
Quarter: 2017Q3

REPORT INFORMATION
  Report Type: Spontaneous
  Country: US (occurrence: US)
  Receive Date: 20170714
  Receipt Date: 20170823
  Transmission Date: 20171127
  Serious: No
  Sender: FDA-Public Use
  Company Number: US-PFIZER INC-2017303074

PATIENT
  Age: 10 Year
  Sex: Female
  Weight: 25.4 kg

DRUGS (1)
  1. EUCRISA [Suspect]
     Active Substance: CRISABOROLE
     Indication: ECZEMA
     Dosage: UNK UNK, 2X/DAY
     Dates: start: 20170708, end: 20170709

REACTIONS (5)
  - Drug ineffective [Recovering/Resolving]
  - Erythema [Recovering/Resolving]
  - Wound [Recovering/Resolving]
  - Pruritus [Recovering/Resolving]
  - Infection [Recovering/Resolving]

NARRATIVE: CASE EVENT DATE: 20170709
